FAERS Safety Report 12203337 (Version 4)
Quarter: 2017Q1

REPORT INFORMATION
  Report Type: Spontaneous
  Country: US (occurrence: US)
  Receive Date: 20160323
  Receipt Date: 20170116
  Transmission Date: 20170428
  Serious: Yes (Hospitalization)
  Sender: FDA-Public Use
  Company Number: US-ASTRAZENECA-2016SE30879

PATIENT
  Age: 917 Month
  Sex: Female
  Weight: 61.2 kg

DRUGS (3)
  1. TUDORZA PRESSAIR [Suspect]
     Active Substance: ACLIDINIUM BROMIDE
     Indication: ASTHMA
     Dosage: 400.0MG UNKNOWN
     Route: 055
     Dates: start: 2015
  2. TUDORZA PRESSAIR [Suspect]
     Active Substance: ACLIDINIUM BROMIDE
     Indication: ASTHMA
     Route: 055
  3. PULMICORT FLEXHALER [Suspect]
     Active Substance: BUDESONIDE
     Indication: ASTHMA
     Dosage: 2 PUFFS ,TWO TIMES A DAY
     Route: 055
     Dates: start: 201611, end: 20161126

REACTIONS (7)
  - Nervousness [Unknown]
  - Hernia [Unknown]
  - Urticaria [Unknown]
  - Malaise [Unknown]
  - Product quality issue [Unknown]
  - Product use issue [Unknown]
  - Off label use [Unknown]

NARRATIVE: CASE EVENT DATE: 201603
